FAERS Safety Report 12851427 (Version 1)
Quarter: 2016Q4

REPORT INFORMATION
  Report Type: Spontaneous
  Country: US (occurrence: US)
  Receive Date: 20161014
  Receipt Date: 20161014
  Transmission Date: 20170207
  Serious: No
  Sender: FDA-Public Use
  Company Number: None

PATIENT
  Sex: Female
  Weight: 11.25 kg

DRUGS (3)
  1. BABY TEETHING (HYLAND HOMEOPATHIC) [Suspect]
     Active Substance: HOMEOPATHICS
     Indication: TEETHING
     Dosage: ?          QUANTITY:4 TABLET(S);?
     Route: 048
     Dates: start: 20160930, end: 20161013
  2. BREATHING MACHINE [Concomitant]
  3. HUMIDIFIER [Concomitant]

REACTIONS (4)
  - Withdrawal syndrome [None]
  - Insomnia [None]
  - Anxiety [None]
  - Irritability [None]
